FAERS Safety Report 7824426-9 (Version None)
Quarter: 2011Q4

REPORT INFORMATION
  Report Type: 
  Country: None (occurrence: None)
  Receive Date: 20111018
  Receipt Date: 20111018
  Transmission Date: 20120403
  Serious: Yes (Life-Threatening, Hospitalization)
  Sender: FDA-Public Use
  Company Number: None

PATIENT
  Sex: Female
  Weight: 68.9467 kg

DRUGS (2)
  1. EVOXAC [Suspect]
     Indication: SJOGREN'S SYNDROME
     Dosage: 30 MG ONCE TID ORAL
     Route: 048
     Dates: start: 20090101, end: 20090101
  2. AMITRIPTYLINE HCL [Suspect]
     Indication: MIGRAINE
     Dosage: 10MG TWICE QHS ORAL
     Route: 048
     Dates: start: 20090210

REACTIONS (4)
  - SICK SINUS SYNDROME [None]
  - DYSPNOEA [None]
  - PALPITATIONS [None]
  - BRADYCARDIA [None]
